FAERS Safety Report 16107212 (Version 1)
Quarter: 2019Q1

REPORT INFORMATION
  Report Type: Spontaneous
  Country: US (occurrence: US)
  Receive Date: 20190322
  Receipt Date: 20190322
  Transmission Date: 20190418
  Serious: No
  Sender: FDA-Public Use
  Company Number: US-BAUSCH-BL-2019-008505

PATIENT
  Sex: Female

DRUGS (3)
  1. XIFAXAN [Suspect]
     Active Substance: RIFAXIMIN
     Dosage: SECOND RETREATMENT
     Route: 065
     Dates: end: 201901
  2. XIFAXAN [Suspect]
     Active Substance: RIFAXIMIN
     Indication: IRRITABLE BOWEL SYNDROME
     Route: 065
     Dates: start: 201811, end: 2018
  3. XIFAXAN [Suspect]
     Active Substance: RIFAXIMIN
     Dosage: FIRST RETREATMENT
     Route: 065
     Dates: start: 2018, end: 201812

REACTIONS (3)
  - Irritable bowel syndrome [Not Recovered/Not Resolved]
  - Inability to afford medication [Unknown]
  - Condition aggravated [Not Recovered/Not Resolved]

NARRATIVE: CASE EVENT DATE: 2019
